FAERS Safety Report 9391812 (Version 1)
Quarter: 2013Q3

REPORT INFORMATION
  Report Type: Spontaneous
  Country: US (occurrence: None)
  Receive Date: 20130705
  Receipt Date: 20130705
  Transmission Date: 20140515
  Serious: Yes (Life-Threatening, Hospitalization, Disabling, Other)
  Sender: FDA-Public Use
  Company Number: MC201300351

PATIENT
  Sex: Male

DRUGS (3)
  1. ANGIOMAX, ANGIOX (BIVALIRUDIN) INJECTION [Suspect]
     Dosage: 15 ML BOLUS
     Route: 042
     Dates: start: 20130621, end: 20130621
  2. PLAVIS (CLOPIDOGREL BISULFATE) [Concomitant]
  3. HEPARIN (HEPARIN SODIUM) [Concomitant]

REACTIONS (6)
  - Cardio-respiratory arrest [None]
  - Intracardiac thrombus [None]
  - Coronary artery thrombosis [None]
  - Platelet count decreased [None]
  - Coagulation time abnormal [None]
  - Underdose [None]
